FAERS Safety Report 5613338-7 (Version None)
Quarter: 2008Q1

REPORT INFORMATION
  Report Type: 
  Country: None (occurrence: None)
  Receive Date: 20080129
  Receipt Date: 20080118
  Transmission Date: 20080703
  Serious: Yes (Other)
  Sender: FDA-Public Use
  Company Number: 2008SP001640

PATIENT
  Age: 50 Year
  Sex: Female
  Weight: 66 kg

DRUGS (3)
  1. DESLORATADINE [Suspect]
     Indication: DRUG USE FOR UNKNOWN INDICATION
     Dosage: 5 MG
     Dates: start: 20070924, end: 20071010
  2. METILPREDNISOLONUM [Concomitant]
  3. ATENOLOLUM [Concomitant]

REACTIONS (2)
  - HEPATOCELLULAR INJURY [None]
  - TRANSAMINASES INCREASED [None]
